FAERS Safety Report 4579977-X (Version None)
Quarter: 2005Q1

REPORT INFORMATION
  Report Type: 
  Country: None (occurrence: None)
  Receive Date: 20050214
  Receipt Date: 20040826
  Transmission Date: 20050727
  Serious: Yes (Hospitalization)
  Sender: FDA-Public Use
  Company Number: BE-ROCHE-378639

PATIENT
  Age: 57 Year
  Sex: Male
  Weight: 61 kg

DRUGS (6)
  1. RIBAVIRIN [Suspect]
     Route: 048
     Dates: start: 20040311, end: 20040716
  2. RIBAVIRIN [Suspect]
     Route: 048
     Dates: start: 20040716
  3. PEG-INTERFERON ALFA 2A (RO 25-8310) [Suspect]
     Dosage: DOSE FORM REPORTED AS SYRINGE.
     Route: 058
     Dates: start: 20040311
  4. AMANTADINE [Suspect]
     Route: 048
     Dates: start: 20040311
  5. ACURETIC [Concomitant]
     Dates: start: 20001015
  6. INSULIN [Concomitant]
     Dates: start: 19960615

REACTIONS (3)
  - ANGINA UNSTABLE [None]
  - BLOOD CREATINE PHOSPHOKINASE INCREASED [None]
  - TROPONIN I INCREASED [None]
